FAERS Safety Report 15028134 (Version 1)
Quarter: 2018Q2

REPORT INFORMATION
  Report Type: Spontaneous
  Country: US (occurrence: US)
  Receive Date: 20180525
  Receipt Date: 20180525
  Transmission Date: 20180711
  Serious: Yes (Hospitalization)
  Sender: FDA-Public Use
  Company Number: None

PATIENT
  Age: 46 Year
  Sex: Female

DRUGS (3)
  1. OPSUMIT [Suspect]
     Active Substance: MACITENTAN
     Indication: PULMONARY ARTERIAL HYPERTENSION
     Route: 048
     Dates: start: 20180506
  2. OPSUMIT [Suspect]
     Active Substance: MACITENTAN
     Indication: CONNECTIVE TISSUE DISORDER
     Route: 048
     Dates: start: 20180506
  3. OPSUMIT [Suspect]
     Active Substance: MACITENTAN
     Indication: HEART DISEASE CONGENITAL
     Route: 048
     Dates: start: 20180506

REACTIONS (3)
  - Unevaluable event [None]
  - Bile duct stenosis [None]
  - Acute kidney injury [None]

NARRATIVE: CASE EVENT DATE: 20180509
